FAERS Safety Report 10230426 (Version 1)
Quarter: 2014Q2

REPORT INFORMATION
  Report Type: Spontaneous
  Country: US (occurrence: US)
  Receive Date: 20140611
  Receipt Date: 20140611
  Transmission Date: 20141212
  Serious: No
  Sender: FDA-Public Use
  Company Number: US-INCYTE CORPORATION-2014IN000652

PATIENT
  Age: 50 Year
  Sex: Female

DRUGS (10)
  1. JAKAFI [Suspect]
     Indication: MYELOFIBROSIS
     Dosage: 15 MG, BID
     Route: 048
     Dates: start: 20130207
  2. DIOVAN [Concomitant]
  3. VITAMIN D2 [Concomitant]
  4. WARFARIN [Concomitant]
  5. PAROXETINE [Concomitant]
  6. SUPREP BOWEL PREP [Concomitant]
  7. LANTUS [Concomitant]
  8. TACROLIMUS [Concomitant]
  9. SYNTHROID [Concomitant]
  10. BENICAR [Concomitant]

REACTIONS (2)
  - Malaise [Not Recovered/Not Resolved]
  - Drug dose omission [Unknown]
